FAERS Safety Report 15827196 (Version 1)
Quarter: 2019Q1

REPORT INFORMATION
  Report Type: Spontaneous
  Country: US (occurrence: US)
  Receive Date: 20190115
  Receipt Date: 20190115
  Transmission Date: 20190417
  Serious: No
  Sender: FDA-Public Use
  Company Number: US-MATRIXX INITIATIVES, INC.-2061203

PATIENT
  Age: 56 Year
  Sex: Male
  Weight: 90.91 kg

DRUGS (1)
  1. ZICAM COLD REMEDY ULTRA CRYSTALS [Suspect]
     Active Substance: HOMEOPATHICS
     Route: 048
     Dates: start: 20190113, end: 20190113

REACTIONS (1)
  - Ageusia [Recovering/Resolving]
